FAERS Safety Report 9820932 (Version 1)
Quarter: 2014Q1

REPORT INFORMATION
  Report Type: Spontaneous
  Country: US (occurrence: None)
  Receive Date: 20140114
  Receipt Date: 20140114
  Transmission Date: 20141002
  Serious: Yes (Hospitalization)
  Sender: FDA-Public Use
  Company Number: None

PATIENT
  Age: 19 Year
  Sex: Female
  Weight: 53.52 kg

DRUGS (1)
  1. TRI-SPRINTEC [Suspect]
     Dosage: 1 PILL ONCE DAILY TAKEN BY MOUTH
     Route: 048

REACTIONS (4)
  - Muscle spasms [None]
  - Vomiting [None]
  - Depression [None]
  - Nausea [None]
